FAERS Safety Report 7928144-8 (Version None)
Quarter: 2011Q4

REPORT INFORMATION
  Report Type: 
  Country: None (occurrence: None)
  Receive Date: 20111118
  Receipt Date: 20111109
  Transmission Date: 20120403
  Serious: Yes (Hospitalization)
  Sender: FDA-Public Use
  Company Number: CL-SANOFI-AVENTIS-2011SA068239

PATIENT
  Age: 63 Year
  Sex: Male
  Weight: 93 kg

DRUGS (20)
  1. FRAGMIN [Concomitant]
     Route: 058
     Dates: start: 20111007, end: 20111011
  2. GLYCERYL TRINITRATE [Concomitant]
     Dosage: DOSE:10 MICROGRAM(S)/MILLILITRE
     Dates: start: 20110928, end: 20110929
  3. BLINDED THERAPY [Suspect]
     Indication: ACUTE CORONARY SYNDROME
     Route: 042
     Dates: start: 20110929, end: 20110929
  4. FRAGMIN [Concomitant]
     Route: 058
     Dates: start: 20111014, end: 20111016
  5. GLYCERYL TRINITRATE [Concomitant]
     Dates: start: 20111006, end: 20111006
  6. PLAVIX [Suspect]
     Indication: ACUTE CORONARY SYNDROME
     Route: 048
  7. NEO-SINTROM [Concomitant]
     Route: 041
     Dates: start: 20110928, end: 20110928
  8. VERAPAMIL [Concomitant]
     Dates: start: 20110929, end: 20110929
  9. ATORVASTATIN [Concomitant]
     Dates: start: 20110928
  10. CLONAZEPAM [Concomitant]
     Dates: start: 20110928, end: 20110928
  11. BISOPROLOL FUMARATE [Concomitant]
     Dates: start: 20111003
  12. FAMOTIDINE [Concomitant]
     Dates: start: 20110930
  13. BERODUAL [Concomitant]
     Dates: start: 20110929, end: 20110929
  14. BERODUAL [Concomitant]
     Dosage: DOSE:4 PUFF(S)
     Dates: start: 20111001
  15. SPIRONOLACTONE [Concomitant]
     Dates: start: 20110930
  16. ENALAPRIL MALEATE [Concomitant]
     Dates: start: 20110930
  17. GLYCERYL TRINITRATE [Concomitant]
     Dates: start: 20110929, end: 20110929
  18. ASPIRIN [Suspect]
     Indication: ACUTE CORONARY SYNDROME
     Route: 048
  19. NEO-SINTROM [Concomitant]
     Route: 041
     Dates: start: 20110929, end: 20110930
  20. FRAGMIN [Concomitant]
     Route: 058
     Dates: start: 20110930, end: 20111005

REACTIONS (1)
  - VASCULAR PSEUDOANEURYSM [None]
